FAERS Safety Report 9288053 (Version 2)
Quarter: 2013Q2

REPORT INFORMATION
  Report Type: Spontaneous
  Country: US (occurrence: US)
  Receive Date: 20130514
  Receipt Date: 20130603
  Transmission Date: 20140414
  Serious: Yes (Other)
  Sender: FDA-Public Use
  Company Number: US-JNJFOC-20130500399

PATIENT
  Age: 16 Year
  Sex: Male

DRUGS (11)
  1. ACETAMINOPHEN [Suspect]
     Indication: PROCEDURAL PAIN
     Dosage: 325MG/CAPLET, TWO CAPLETS,10:22
     Route: 048
     Dates: start: 20101203
  2. PLACEBO [Suspect]
     Indication: PROCEDURAL PAIN
     Dosage: 2 CAPLETS (TWO 500 MG CAPLET)
     Route: 065
  3. AMOXICILLIN [Concomitant]
     Indication: INFECTION
     Route: 048
     Dates: start: 20101204
  4. AMOXICILLIN [Concomitant]
     Indication: PROPHYLAXIS
     Route: 048
     Dates: start: 20101204
  5. BENZOCAINE [Concomitant]
     Indication: ANAESTHESIA
     Route: 061
     Dates: start: 20101203, end: 20101203
  6. IBUPROFEN [Concomitant]
     Indication: PROCEDURAL PAIN
     Route: 048
     Dates: start: 20101203, end: 20101203
  7. IBUPROFEN [Concomitant]
     Indication: PROCEDURAL PAIN
     Route: 048
     Dates: start: 20101204, end: 20101206
  8. LIDOCAINE W/EPINEPHRINE [Concomitant]
     Indication: ANAESTHESIA
     Dosage: PERIODONTAL
     Route: 050
     Dates: start: 20101203, end: 20101203
  9. MULTIVITAMINS [Concomitant]
     Indication: MEDICAL DIET
     Route: 048
     Dates: start: 20101123, end: 20101123
  10. NITROUS OXIDE [Concomitant]
     Indication: ANAESTHESIA
     Route: 055
     Dates: start: 20101203, end: 20101203
  11. OXYGEN [Concomitant]
     Indication: ANAESTHESIA
     Route: 055
     Dates: start: 20101203, end: 20101203

REACTIONS (5)
  - Syncope [Recovered/Resolved]
  - Hyperhidrosis [Recovered/Resolved]
  - Tachypnoea [Recovered/Resolved]
  - Nausea [Recovered/Resolved]
  - Dizziness [Recovered/Resolved]
